FAERS Safety Report 8909225 (Version 1)
Quarter: 2012Q4

REPORT INFORMATION
  Report Type: Spontaneous
  Country: US (occurrence: None)
  Receive Date: 20121113
  Receipt Date: 20121113
  Transmission Date: 20130627
  Serious: Yes (Other)
  Sender: FDA-Public Use
  Company Number: None

PATIENT
  Age: 82 Year
  Sex: Male
  Weight: 57.1 kg

DRUGS (1)
  1. HEPARIN [Suspect]
     Indication: DVT PROPHYLAXIS
     Dosage: sq
     Dates: start: 20120726, end: 20120810

REACTIONS (2)
  - Thrombocytopenia [None]
  - Antibody test positive [None]
